FAERS Safety Report 16351705 (Version 2)
Quarter: 2019Q2

REPORT INFORMATION
  Report Type: Report from Study
  Country: PL (occurrence: PL)
  Receive Date: 20190524
  Receipt Date: 20190603
  Transmission Date: 20190711
  Serious: Yes (Hospitalization)
  Sender: FDA-Public Use
  Company Number: PL-ROCHE-2287408

PATIENT
  Age: 65 Year
  Sex: Male
  Weight: 73.2 kg

DRUGS (33)
  1. BETALOC ZOK [Concomitant]
     Active Substance: METOPROLOL SUCCINATE
     Indication: HYPERTENSION
     Route: 048
     Dates: start: 2000
  2. MILURIT [Concomitant]
     Active Substance: ALLOPURINOL
     Indication: HYPERURICAEMIA
     Route: 048
     Dates: start: 20190212, end: 20190304
  3. ZARZIO [Concomitant]
     Active Substance: FILGRASTIM
     Indication: NEUTROPENIA
     Dosage: INFUSION PREMEDICATION; NEUTROPENIA PROPHYLAXIS?DOSE 48 OTHER
     Route: 058
     Dates: start: 20190306, end: 20190310
  4. ZARZIO [Concomitant]
     Active Substance: FILGRASTIM
     Dosage: INFUSION PREMEDICATION; NEUTROPENIA PROPHYLAXIS?DOSE 48 OTHER
     Route: 058
     Dates: start: 20190509, end: 20190513
  5. METOPROLOL. [Concomitant]
     Active Substance: METOPROLOL
     Dosage: GIVEN DURING HOSPITALIZATION DUE TO ANEMIA
     Route: 065
     Dates: start: 201905, end: 201905
  6. RITUXIMAB. [Suspect]
     Active Substance: RITUXIMAB
     Indication: DIFFUSE LARGE B-CELL LYMPHOMA
     Dosage: DATE OF MOST RECENT DOSE OF RITUXIMAB PRIOR TO SAE ONSET (DEEP ANEMIA): 05/MAR/2019 (738.75 MG)?DATE
     Route: 042
     Dates: start: 20190212
  7. CEFUROXIME. [Concomitant]
     Active Substance: CEFUROXIME
     Indication: OTITIS MEDIA
     Route: 048
     Dates: start: 20190225, end: 20190302
  8. PLACEBO [Suspect]
     Active Substance: UNSPECIFIED INGREDIENT
     Indication: DIFFUSE LARGE B-CELL LYMPHOMA
     Dosage: DATE OF MOST RECENT DOSE OF BLINDED POLATUZUMAB VEDOTIN PRIOR TO SAE ONSET: 05/MAR/2019?DATE OF MOST
     Route: 042
     Dates: start: 20190213
  9. VINCRISTINE [Suspect]
     Active Substance: VINCRISTINE
     Indication: DIFFUSE LARGE B-CELL LYMPHOMA
     Dosage: DOSE: 1 MG/1ML?DATE OF MOST RECENT DOSE OF BLINDED VINCRISTINE PRIOR TO SAE ONSET: 05/MAR/2019 (2 MG
     Route: 042
     Dates: start: 20190213
  10. DOXORUBICIN [Suspect]
     Active Substance: DOXORUBICIN
     Indication: DIFFUSE LARGE B-CELL LYMPHOMA
     Dosage: DATE OF MOST RECENT DOSE OF DOXORUBICIN PRIOR TO SAE ONSET (DEEP ANEMIA): 05/MAR/2019 (98.5 MG)?DATE
     Route: 042
     Dates: start: 20190213
  11. DIURESIN [Concomitant]
     Active Substance: INDAPAMIDE
     Indication: HYPERTENSION
     Route: 048
     Dates: start: 2000
  12. CLEMASTINE [Concomitant]
     Active Substance: CLEMASTINE
     Dosage: INFUSION PREMEDICATION
     Route: 042
     Dates: start: 20190416, end: 20190416
  13. ONDANSETRON [Concomitant]
     Active Substance: ONDANSETRON
     Dosage: INFUSION PREMEDICATION
     Route: 042
     Dates: start: 20190416, end: 20190416
  14. PARACETAMOL [Concomitant]
     Active Substance: ACETAMINOPHEN
     Dosage: INFUSION PREMEDICATION
     Route: 042
     Dates: start: 20190416, end: 20190416
  15. METOPROLOL. [Concomitant]
     Active Substance: METOPROLOL
     Dosage: GIVEN DURING HOSPITALIZATION DUE TO ANEMIA
     Route: 065
     Dates: start: 201905, end: 201905
  16. NORVASC [Concomitant]
     Active Substance: AMLODIPINE BESYLATE
     Indication: HYPERTENSION
     Route: 048
     Dates: start: 2000
  17. MILURIT [Concomitant]
     Active Substance: ALLOPURINOL
     Dosage: HYPERURICEMIA PROPHYLAXIS
     Route: 048
     Dates: start: 20190305, end: 20190508
  18. CLEMASTINE [Concomitant]
     Active Substance: CLEMASTINE
     Dosage: INFUSION PREMEDICATION
     Route: 042
     Dates: start: 20190305, end: 20190305
  19. FINASTER [Concomitant]
     Indication: BENIGN PROSTATIC HYPERPLASIA
     Route: 048
     Dates: start: 20180311
  20. ONDANSETRON [Concomitant]
     Active Substance: ONDANSETRON
     Dosage: INFUSION PREMEDICATION
     Route: 042
     Dates: start: 20190508, end: 20190508
  21. ZARZIO [Concomitant]
     Active Substance: FILGRASTIM
     Route: 058
     Dates: start: 20190417, end: 20190426
  22. PARACETAMOL [Concomitant]
     Active Substance: ACETAMINOPHEN
     Dosage: INFUSION PREMEDICATION
     Route: 042
     Dates: start: 20190305, end: 20190305
  23. CYCLOPHOSPHAMIDE. [Suspect]
     Active Substance: CYCLOPHOSPHAMIDE
     Indication: DIFFUSE LARGE B-CELL LYMPHOMA
     Dosage: DATE OF MOST RECENT DOSE OF CYCLOPHOSPHAMIDE PRIOR TO SAE ONSET (DEEP ANEMIA): 05/MAR/2019 (1477.5 M
     Route: 042
     Dates: start: 20190213
  24. CLEMASTINE [Concomitant]
     Active Substance: CLEMASTINE
     Dosage: INFUSION PREMEDICATION
     Route: 042
     Dates: start: 20190508, end: 20190508
  25. ONDANSETRON [Concomitant]
     Active Substance: ONDANSETRON
     Dosage: INFUSION PREMEDICATION
     Route: 042
     Dates: start: 20190213, end: 20190213
  26. CEFUROXIME. [Concomitant]
     Active Substance: CEFUROXIME
     Indication: UPPER RESPIRATORY TRACT INFECTION
     Route: 048
     Dates: start: 20190403, end: 20190407
  27. CLEMASTINE [Concomitant]
     Active Substance: CLEMASTINE
     Dosage: INFUSION PREMEDICATION
     Route: 042
     Dates: start: 20190213, end: 20190213
  28. ZARZIO [Concomitant]
     Active Substance: FILGRASTIM
     Indication: PROPHYLAXIS
     Dosage: INFUSION PREMEDICATION?DOSE 48 OTHER
     Route: 058
     Dates: start: 20190215, end: 20190219
  29. NACL [Concomitant]
     Active Substance: SODIUM CHLORIDE
     Dosage: GIVEN DURING HOSPITALISATION
     Route: 065
     Dates: start: 201903, end: 201903
  30. PREDNISONE. [Suspect]
     Active Substance: PREDNISONE
     Indication: DIFFUSE LARGE B-CELL LYMPHOMA
     Dosage: DATE OF MOST RECENT DOSE OF PREDNISONE PRIOR TO SAE ONSET (DEEP ANEMIA): 09/MAR/2019 (100 MG)?ON DAY
     Route: 048
     Dates: start: 20190212
  31. ONDANSETRON [Concomitant]
     Active Substance: ONDANSETRON
     Dosage: INFUSION PREMEDICATION
     Route: 042
     Dates: start: 20190305, end: 20190305
  32. ZARZIO [Concomitant]
     Active Substance: FILGRASTIM
     Route: 058
     Dates: start: 20190408, end: 20190412
  33. PARACETAMOL [Concomitant]
     Active Substance: ACETAMINOPHEN
     Dosage: INFUSION PREMEDICATION
     Route: 042
     Dates: start: 20190508, end: 20190508

REACTIONS (1)
  - Anaemia [Recovered/Resolved]

NARRATIVE: CASE EVENT DATE: 20190315
